FAERS Safety Report 12746673 (Version 1)
Quarter: 2016Q3

REPORT INFORMATION
  Report Type: Report from Study
  Country: AU (occurrence: AU)
  Receive Date: 20160915
  Receipt Date: 20160915
  Transmission Date: 20161109
  Serious: Yes (Other)
  Sender: FDA-Public Use
  Company Number: AU-REGENERON PHARMACEUTICALS, INC.-2016-21518

PATIENT

DRUGS (3)
  1. EYLEA [Suspect]
     Active Substance: AFLIBERCEPT
     Indication: NEOVASCULAR AGE-RELATED MACULAR DEGENERATION
     Dosage: LOADING DOSE
     Route: 031
     Dates: start: 20150813
  2. EYLEA [Suspect]
     Active Substance: AFLIBERCEPT
     Dosage: 2 MG, LATEST INJECTION
     Route: 031
     Dates: start: 201606
  3. EYLEA [Suspect]
     Active Substance: AFLIBERCEPT
     Dosage: 2 MG, Q8 WEEKLY
     Route: 031
     Dates: start: 20150813

REACTIONS (4)
  - Intra-ocular injection [Recovered/Resolved]
  - Foreign body sensation in eyes [Recovered/Resolved]
  - Product use issue [Unknown]
  - Limb mass [Unknown]

NARRATIVE: CASE EVENT DATE: 20150813
